FAERS Safety Report 9154664 (Version 1)
Quarter: 2013Q1

REPORT INFORMATION
  Report Type: Report from Study
  Country: US (occurrence: US)
  Receive Date: 20130311
  Receipt Date: 20130311
  Transmission Date: 20140127
  Serious: No
  Sender: FDA-Public Use
  Company Number: US-ABBOTT-12P-163-0973389-00

PATIENT
  Sex: Female
  Weight: 61.29 kg

DRUGS (1)
  1. LUPRON DEPOT 11.25 MG [Suspect]
     Indication: PELVIC PAIN
     Dates: start: 20120530

REACTIONS (2)
  - Off label use [Not Recovered/Not Resolved]
  - Hot flush [Recovering/Resolving]
